FAERS Safety Report 9329529 (Version 1)
Quarter: 2013Q2

REPORT INFORMATION
  Report Type: Spontaneous
  Country: US (occurrence: US)
  Receive Date: 20130604
  Receipt Date: 20130604
  Transmission Date: 20140414
  Serious: No
  Sender: FDA-Public Use
  Company Number: US-SANOFI-AVENTIS-2013SA029184

PATIENT
  Age: 66 Year
  Sex: Male

DRUGS (9)
  1. SOLOSTAR [Suspect]
     Indication: TYPE 2 DIABETES MELLITUS
     Dates: start: 2004
  2. SOLOSTAR [Suspect]
     Indication: TYPE 2 DIABETES MELLITUS
  3. LANTUS SOLOSTAR [Suspect]
     Indication: TYPE 2 DIABETES MELLITUS
     Dosage: DOSE:50 UNIT(S)
     Route: 051
     Dates: start: 2004
  4. LANTUS SOLOSTAR [Suspect]
     Indication: TYPE 2 DIABETES MELLITUS
     Route: 051
  5. NOVOLOG [Concomitant]
     Indication: DIABETES MELLITUS
     Dosage: DOSE VARIES; AVERAGE 30 UNITS
     Dates: start: 2004
  6. BENAZEPRIL [Concomitant]
     Indication: HYPERTENSION
     Dates: start: 2000
  7. SIMVASTATIN [Concomitant]
     Indication: DIABETES MELLITUS
     Dates: start: 2004
  8. METOPROLOL [Concomitant]
     Indication: HYPERTENSION
     Dates: start: 201302
  9. METFORMIN [Concomitant]
     Indication: DIABETES MELLITUS
     Dates: start: 1998

REACTIONS (3)
  - Back pain [Unknown]
  - Blood glucose increased [Recovered/Resolved]
  - Drug ineffective [Unknown]
